FAERS Safety Report 11273828 (Version 1)
Quarter: 2015Q3

REPORT INFORMATION
  Report Type: Spontaneous
  Country: US (occurrence: None)
  Receive Date: 20150714
  Receipt Date: 20150714
  Transmission Date: 20151125
  Serious: Yes (Hospitalization)
  Sender: FDA-Public Use
  Company Number: None

PATIENT
  Age: 55 Year
  Sex: Male
  Weight: 93.2 kg

DRUGS (2)
  1. DICLOXACILLIN [Suspect]
     Active Substance: DICLOXACILLIN
     Indication: CELLULITIS
     Dosage: 2 TAB, QID, PO
     Route: 048
     Dates: start: 20140715, end: 20140719
  2. LISINOPRIL. [Suspect]
     Active Substance: LISINOPRIL
     Indication: BLOOD PRESSURE MEASUREMENT
     Dosage: 1 TAB, EVERYDAY, PO
     Route: 048
     Dates: start: 20051208, end: 20140719

REACTIONS (3)
  - Pharyngeal oedema [None]
  - Lip swelling [None]
  - Angioedema [None]

NARRATIVE: CASE EVENT DATE: 20140719
